FAERS Safety Report 5840583-8 (Version None)
Quarter: 2008Q3

REPORT INFORMATION
  Report Type: 
  Country: None (occurrence: None)
  Receive Date: 20080811
  Receipt Date: 20080731
  Transmission Date: 20090109
  Serious: Yes (Hospitalization)
  Sender: FDA-Public Use
  Company Number: US-ELI_LILLY_AND_COMPANY-US200804003565

PATIENT
  Age: 60 Year
  Sex: Female

DRUGS (2)
  1. CYMBALTA [Suspect]
     Indication: DIABETIC NEUROPATHY
     Dosage: 60 MG, DAILY (1/D)
  2. CIPRO [Concomitant]
     Indication: URINARY TRACT INFECTION

REACTIONS (4)
  - CARDIOMYOPATHY [None]
  - DRUG INTERACTION [None]
  - FALL [None]
  - NAUSEA [None]
